FAERS Safety Report 5109864-X (Version None)
Quarter: 2006Q3

REPORT INFORMATION
  Report Type: 
  Country: None (occurrence: None)
  Receive Date: 20060918
  Receipt Date: 20060918
  Transmission Date: 20061208
  Serious: Yes (Hospitalization)
  Sender: FDA-Public Use
  Company Number: None

PATIENT
  Sex: Male
  Weight: 24 kg

DRUGS (17)
  1. PEG-L-ASPARAGINASE (K-H) [Suspect]
     Dosage: 2125 IU
     Dates: start: 20060217
  2. PEG-L-ASPARAGINASE (K-H) [Suspect]
     Dosage: 2125 IU
     Dates: start: 20060321
  3. PEG-L-ASPARAGINASE (K-H) [Suspect]
     Dosage: 2125 IU
     Dates: start: 20060411
  4. PEG-L-ASPARAGINASE (K-H) [Suspect]
     Dosage: 2125 IU
     Dates: start: 20060502
  5. PEG-L-ASPARAGINASE (K-H) [Suspect]
     Dosage: 2125 IU
     Dates: start: 20060523
  6. CYCLOPHOSPHAMIDE [Suspect]
     Dosage: 850 MG
  7. CYTARABINE [Suspect]
     Dosage: 512 MG
  8. DEXAMETHASONE TAB [Suspect]
     Dosage: 178.5MG
  9. DOXORUBICIN HCL [Suspect]
     Dosage: 63 MG
     Dates: start: 20060613
  10. DOXORUBICIN HCL [Suspect]
     Dosage: 63 MG
     Dates: start: 20060621
  11. DOXORUBICIN HCL [Suspect]
     Dosage: 63 MG
     Dates: start: 20060628
  12. METHOTREXATE [Suspect]
     Dosage: 30 MG
     Dates: start: 20060613
  13. METHOTREXATE [Suspect]
     Dosage: 30 MG
     Dates: start: 20060718
  14. THIOGUANINE [Suspect]
     Dosage: 720 MG
  15. VINCRISTINE SULFATE [Suspect]
     Dosage: 3.9MG
     Dates: start: 20060613
  16. VINCRISTINE SULFATE [Suspect]
     Dosage: 3.9MG
     Dates: start: 20060621
  17. VINCRISTINE SULFATE [Suspect]
     Dosage: 3.9MG
     Dates: start: 20060628

REACTIONS (7)
  - ARTERIAL THROMBOSIS [None]
  - BACK PAIN [None]
  - CHEST PAIN [None]
  - CRYING [None]
  - MUSCULOSKELETAL PAIN [None]
  - NEUTROPENIA [None]
  - PULMONARY EMBOLISM [None]
